FAERS Safety Report 15969809 (Version 1)
Quarter: 2019Q1

REPORT INFORMATION
  Report Type: Spontaneous
  Country: US (occurrence: US)
  Receive Date: 20190215
  Receipt Date: 20190215
  Transmission Date: 20190418
  Serious: Yes (Life-Threatening, Other)
  Sender: FDA-Public Use
  Company Number: US-FRESENIUS KABI-FK201901717

PATIENT
  Age: 28 Year
  Sex: Female

DRUGS (7)
  1. CEFAZOLIN SODIUM. [Concomitant]
     Active Substance: CEFAZOLIN SODIUM
     Indication: ANTIBIOTIC PROPHYLAXIS
     Route: 065
  2. NO DRUG NAME [Concomitant]
     Indication: INDUCTION OF ANAESTHESIA
     Route: 065
  3. NO DRUG NAME [Concomitant]
     Indication: MAINTENANCE OF ANAESTHESIA
  4. CEFAZOLIN SODIUM. [Concomitant]
     Active Substance: CEFAZOLIN SODIUM
     Indication: IRRIGATION THERAPY
  5. BACITRACIN (MANUFACTURER UNKNOWN) [Suspect]
     Active Substance: BACITRACIN
     Indication: PRODUCT USED FOR UNKNOWN INDICATION
     Dosage: IRRIGATION OF BOTH BREAST TISSUE POCKETS
     Route: 050
  6. BACITRACIN (MANUFACTURER UNKNOWN) [Suspect]
     Active Substance: BACITRACIN
     Indication: IRRIGATION THERAPY
  7. CEFAZOLIN SODIUM. [Concomitant]
     Active Substance: CEFAZOLIN SODIUM
     Indication: PRODUCT USED FOR UNKNOWN INDICATION
     Dosage: IRRIGATION OF BOTH BREAST TISSUE POCKETS
     Route: 050

REACTIONS (2)
  - Product use issue [Recovered/Resolved]
  - Anaphylactic shock [Recovered/Resolved]
